FAERS Safety Report 11537631 (Version 2)
Quarter: 2015Q4

REPORT INFORMATION
  Report Type: Spontaneous
  Country: US (occurrence: US)
  Receive Date: 20150922
  Receipt Date: 20151124
  Transmission Date: 20160304
  Serious: Yes (Life-Threatening)
  Sender: FDA-Public Use
  Company Number: US-CELGENE-USA-2015094040

PATIENT
  Age: 86 Year
  Sex: Female

DRUGS (1)
  1. OTEZLA [Suspect]
     Active Substance: APREMILAST
     Indication: PSORIASIS
     Dosage: 60 MILLIGRAM
     Route: 048
     Dates: start: 20150718, end: 20150731

REACTIONS (5)
  - Therapy cessation [None]
  - Psoriasis [None]
  - Atrial fibrillation [Not Recovered/Not Resolved]
  - Stress [None]
  - Fall [None]

NARRATIVE: CASE EVENT DATE: 20150805
